FAERS Safety Report 5614881-7 (Version None)
Quarter: 2008Q1

REPORT INFORMATION
  Report Type: 
  Country: None (occurrence: None)
  Receive Date: 20080131
  Receipt Date: 20080122
  Transmission Date: 20080703
  Serious: Yes (Other)
  Sender: FDA-Public Use
  Company Number: 2008AP000241

PATIENT
  Age: 31 Year
  Sex: Female

DRUGS (3)
  1. PAROXETINE HCL [Suspect]
     Dosage: 10 MG;QD; 30 MG;QD; 20 MG;QD
     Dates: start: 19990424
  2. PAROXETINE HCL [Suspect]
     Dosage: 10 MG;QD; 30 MG;QD; 20 MG;QD
     Dates: start: 19990601
  3. PAROXETINE HCL [Suspect]
     Dosage: 10 MG;QD; 30 MG;QD; 20 MG;QD
     Dates: start: 20050101

REACTIONS (19)
  - AGGRESSION [None]
  - ANGER [None]
  - ANXIETY [None]
  - CONVULSION [None]
  - CRYING [None]
  - DEPRESSED MOOD [None]
  - DIARRHOEA [None]
  - DRUG WITHDRAWAL SYNDROME [None]
  - DYSPNOEA [None]
  - EMOTIONAL DISTRESS [None]
  - HEADACHE [None]
  - MOOD SWINGS [None]
  - MUSCLE TIGHTNESS [None]
  - MUSCLE TWITCHING [None]
  - PARAESTHESIA [None]
  - PAROSMIA [None]
  - SOMNOLENCE [None]
  - SUICIDAL IDEATION [None]
  - TINNITUS [None]
